FAERS Safety Report 9836275 (Version 2)
Quarter: 2014Q1

REPORT INFORMATION
  Report Type: Spontaneous
  Country: JP (occurrence: JP)
  Receive Date: 20140123
  Receipt Date: 20140123
  Transmission Date: 20141002
  Serious: Yes (Other)
  Sender: FDA-Public Use
  Company Number: JP-ROCHE-1308264

PATIENT
  Age: 68 Year
  Sex: Female
  Weight: 50 kg

DRUGS (31)
  1. AVASTIN [Suspect]
     Indication: COLON CANCER METASTATIC
     Dosage: DOSAGE IS UNCERTAIN.
     Route: 041
     Dates: start: 20110317, end: 20120103
  2. AVASTIN [Suspect]
     Route: 041
     Dates: start: 20120111, end: 20130313
  3. AVASTIN [Suspect]
     Route: 041
     Dates: start: 20130703, end: 20130717
  4. XELODA [Suspect]
     Indication: COLON CANCER METASTATIC
     Dosage: DOSAGE IS UNCERTAIN.
     Route: 048
     Dates: start: 2013
  5. ELPLAT [Suspect]
     Indication: COLON CANCER METASTATIC
     Route: 041
     Dates: start: 20110317, end: 20120103
  6. ELPLAT [Suspect]
     Indication: COLON CANCER METASTATIC
     Route: 041
     Dates: start: 20130703, end: 20130717
  7. ELPLAT [Suspect]
     Indication: COLON CANCER METASTATIC
     Dosage: DOSAGE IS UNCERTAIN.
     Route: 041
     Dates: start: 2013
  8. ELPLAT [Suspect]
     Route: 041
     Dates: start: 20100414, end: 20110309
  9. ERBITUX [Suspect]
     Indication: COLON CANCER METASTATIC
     Dosage: DOSAGE IS UNCERTAIN.
     Route: 041
     Dates: start: 20130424, end: 20130625
  10. 5-FU [Concomitant]
     Indication: COLON CANCER METASTATIC
     Route: 040
     Dates: start: 20110317, end: 20130703
  11. 5-FU [Concomitant]
     Indication: COLON CANCER METASTATIC
     Route: 065
     Dates: start: 20100414, end: 20110309
  12. 5-FU [Concomitant]
     Route: 065
     Dates: start: 20120111, end: 20130326
  13. 5-FU [Concomitant]
     Route: 065
     Dates: start: 20130424, end: 20130625
  14. 5-FU [Concomitant]
     Route: 065
     Dates: start: 20130703, end: 20130707
  15. IRINOTECAN HYDROCHLORIDE [Concomitant]
     Indication: COLON CANCER METASTATIC
     Dosage: DOSAGE IS UNCERTAIN.
     Route: 041
     Dates: start: 20120111, end: 20130326
  16. IRINOTECAN HYDROCHLORIDE [Concomitant]
     Indication: COLON CANCER METASTATIC
     Dosage: DOSAGE IS UNCERTAIN.
     Route: 041
     Dates: start: 20130424, end: 20130625
  17. GRANISETRON [Concomitant]
     Indication: PROPHYLAXIS
     Route: 041
     Dates: start: 20100414, end: 20130717
  18. DECADRON [Concomitant]
     Indication: PROPHYLAXIS
     Route: 042
     Dates: start: 20100414, end: 20130717
  19. DECADRON [Concomitant]
     Indication: PROPHYLAXIS
     Route: 048
     Dates: start: 20130704, end: 20130706
  20. EMEND [Concomitant]
     Indication: PROPHYLAXIS
     Route: 048
     Dates: start: 20110317, end: 20130717
  21. EMEND [Concomitant]
     Indication: PROPHYLAXIS
     Route: 048
     Dates: start: 20130704, end: 20130707
  22. URSO [Concomitant]
     Indication: COLON CANCER METASTATIC
     Route: 048
     Dates: start: 20130520
  23. ALLEGRA [Concomitant]
     Indication: DERMATITIS ALLERGIC
     Route: 048
     Dates: start: 20130522, end: 20130716
  24. DAIKENCHUTO [Concomitant]
     Indication: PROPHYLAXIS
     Route: 048
     Dates: start: 20100525
  25. MAGNESIUM OXIDE [Concomitant]
     Indication: PROPHYLAXIS
     Route: 048
     Dates: start: 20100426
  26. PURSENNID [Concomitant]
     Indication: PROPHYLAXIS
     Route: 048
     Dates: start: 20100426
  27. CALCIUM LEVOFOLINATE [Concomitant]
     Indication: COLON CANCER METASTATIC
     Route: 041
     Dates: start: 20100414, end: 20110309
  28. CALCIUM LEVOFOLINATE [Concomitant]
     Route: 065
     Dates: start: 20110317, end: 20130717
  29. CALCIUM LEVOFOLINATE [Concomitant]
     Route: 065
     Dates: start: 20120111, end: 20130326
  30. CALCIUM LEVOFOLINATE [Concomitant]
     Route: 065
     Dates: start: 20130424, end: 20130625
  31. CALCIUM LEVOFOLINATE [Concomitant]
     Route: 065
     Dates: start: 20130703, end: 20130717

REACTIONS (3)
  - Anaphylactoid reaction [Recovered/Resolved]
  - Anaphylactoid reaction [Unknown]
  - Dermatitis allergic [Unknown]
